FAERS Safety Report 21891994 (Version 1)
Quarter: 2023Q1

REPORT INFORMATION
  Report Type: Spontaneous
  Country: GB (occurrence: GB)
  Receive Date: 20230120
  Receipt Date: 20230120
  Transmission Date: 20230418
  Serious: Yes (Other)
  Sender: FDA-Public Use
  Company Number: None

PATIENT
  Age: 51 Year
  Sex: Female
  Weight: 55 kg

DRUGS (10)
  1. SULFASALAZINE [Suspect]
     Active Substance: SULFASALAZINE
     Dosage: UNK
     Dates: start: 20220119
  2. CALCIUM\CHOLECALCIFEROL [Concomitant]
     Active Substance: CALCIUM\CHOLECALCIFEROL
     Dosage: TAKE TWO TWICE DAILY
     Dates: start: 20220426
  3. CETRABEN [LIGHT LIQUID PARAFFIN;WHITE SOFT PARAFFIN] [Concomitant]
     Dosage: USE AS DIRECTED
     Dates: start: 20220317
  4. DERMOL 200 [Concomitant]
     Dosage: USE AS DIRECTED
     Dates: start: 20220426
  5. DIAZEPAM [Concomitant]
     Active Substance: DIAZEPAM
     Dosage: TAKE ONE AS NEEDED TO HELP HAVE A SMEAR
     Dates: start: 20221117, end: 20221120
  6. ESTRIOL [Concomitant]
     Active Substance: ESTRIOL
     Dosage: APPLY AT NIGHT
     Dates: start: 20220728
  7. ESTRIOL [Concomitant]
     Active Substance: ESTRIOL
     Dosage: APPLY AT NIGHT FOR 4 WEEKS THEN ALT NIGHTS FOR ...
     Dates: start: 20220922
  8. PROPRANOLOL [Concomitant]
     Active Substance: PROPRANOLOL HYDROCHLORIDE
     Dosage: TAKE ONE 3 TIMES/DAY
     Dates: start: 20221117, end: 20221126
  9. SOLIFENACIN [Concomitant]
     Active Substance: SOLIFENACIN
     Dosage: TAKE ONE DAILY
     Dates: start: 20220426
  10. VENTOLIN [Concomitant]
     Active Substance: ALBUTEROL SULFATE
     Dosage: INHALE 2 DOSES AS NEEDED
     Dates: start: 20220428

REACTIONS (3)
  - Rash erythematous [Recovered/Resolved]
  - Nausea [Unknown]
  - Malaise [Unknown]

NARRATIVE: CASE EVENT DATE: 20230117
